FAERS Safety Report 4338134-2 (Version None)
Quarter: 2004Q2

REPORT INFORMATION
  Report Type: 
  Country: None (occurrence: None)
  Receive Date: 20040412
  Receipt Date: 20040412
  Transmission Date: 20050107
  Serious: Yes (Death, Hospitalization)
  Sender: FDA-Public Use
  Company Number: None

PATIENT
  Age: 47 Year
  Sex: Female
  Weight: 96.6162 kg

DRUGS (8)
  1. THALIDOMID 50 MG CELGENE [Suspect]
     Indication: MULTIPLE MYELOMA
     Dosage: 200 MG ORAL
     Route: 048
     Dates: start: 20031122, end: 20040316
  2. MELPHALAN 100 MG [Suspect]
     Indication: MULTIPLE MYELOMA
     Dosage: 140 MG/M2 IV
     Route: 042
     Dates: start: 20030923, end: 20030923
  3. DEXMETASONE [Concomitant]
  4. CYTOXAN [Concomitant]
  5. PREDNISONE [Concomitant]
  6. COUMADIN [Concomitant]
  7. PEPCID [Concomitant]
  8. NEURONTIN [Concomitant]

REACTIONS (7)
  - DIARRHOEA [None]
  - DYSPNOEA [None]
  - GASTROINTESTINAL HAEMORRHAGE [None]
  - LUNG INFILTRATION [None]
  - NEUROPATHY [None]
  - PARAPROTEINAEMIA [None]
  - PYREXIA [None]
